FAERS Safety Report 11520374 (Version 1)
Quarter: 2015Q3

REPORT INFORMATION
  Report Type: Spontaneous
  Country: US (occurrence: None)
  Receive Date: 20150917
  Receipt Date: 20150917
  Transmission Date: 20151125
  Serious: Yes (Other)
  Sender: FDA-Public Use
  Company Number: None

PATIENT
  Age: 34 Year
  Sex: Female
  Weight: 42.64 kg

DRUGS (16)
  1. VALIUM [Concomitant]
     Active Substance: DIAZEPAM
  2. NEXIUM [Concomitant]
     Active Substance: ESOMEPRAZOLE MAGNESIUM
  3. KLONOPIN [Suspect]
     Active Substance: CLONAZEPAM
     Indication: ANXIETY
     Route: 048
     Dates: start: 20150806, end: 20150807
  4. ALLEGRA [Concomitant]
     Active Substance: FEXOFENADINE HYDROCHLORIDE
  5. IBUPROFEN. [Concomitant]
     Active Substance: IBUPROFEN
  6. BENADRYL [Concomitant]
     Active Substance: DIPHENHYDRAMINE HYDROCHLORIDE
  7. SEROQUEL XR [Concomitant]
     Active Substance: QUETIAPINE FUMARATE
  8. EPINEPHRINE. [Concomitant]
     Active Substance: EPINEPHRINE
  9. RELPAX [Concomitant]
     Active Substance: ELETRIPTAN HYDROBROMIDE
  10. KLONOPIN [Suspect]
     Active Substance: CLONAZEPAM
     Indication: TREMOR
     Route: 048
     Dates: start: 20150806, end: 20150807
  11. VITAMIN B COMPLEX [Concomitant]
     Active Substance: CYANOCOBALAMIN\DEXPANTHENOL\NIACINAMIDE\PYRIDOXINE HYDROCHLORIDE\RIBOFLAVIN 5^-PHOSPHATE SODIUM\THIAMINE HYDROCHLORIDE\VITAMIN B COMPLEX
  12. DULCOLAX [Concomitant]
     Active Substance: BISACODYL OR DOCUSATE SODIUM
  13. MULTIVITAMIN [Concomitant]
     Active Substance: VITAMINS
  14. GAS-X [Concomitant]
     Active Substance: DIMETHICONE
  15. ZYRTEC [Concomitant]
     Active Substance: CETIRIZINE HYDROCHLORIDE
  16. MIGRANAL [Concomitant]
     Active Substance: DIHYDROERGOTAMINE MESYLATE

REACTIONS (10)
  - Pruritus generalised [None]
  - Swelling [None]
  - Amnesia [None]
  - Flatulence [None]
  - Decreased appetite [None]
  - Urinary retention [None]
  - Urticaria [None]
  - Gastrointestinal oedema [None]
  - Weight increased [None]
  - White blood cell count decreased [None]

NARRATIVE: CASE EVENT DATE: 20150808
